FAERS Safety Report 25446116 (Version 1)
Quarter: 2025Q2

REPORT INFORMATION
  Report Type: Spontaneous
  Country: FR (occurrence: FR)
  Receive Date: 20250617
  Receipt Date: 20250617
  Transmission Date: 20250717
  Serious: Yes (Death)
  Sender: PFIZER
  Company Number: None

PATIENT
  Age: 83 Year
  Sex: Female
  Weight: 65 kg

DRUGS (16)
  1. MEROPENEM [Suspect]
     Active Substance: MEROPENEM
     Indication: Otitis externa
     Route: 042
     Dates: start: 20250103, end: 20250108
  2. LINEZOLID [Suspect]
     Active Substance: LINEZOLID
     Indication: Otitis externa
     Dosage: 1200 MG, DAILY
     Route: 048
     Dates: start: 20250103, end: 20250108
  3. BISOPROLOL FUMARATE [Concomitant]
     Active Substance: BISOPROLOL FUMARATE
     Dosage: 5 MG, 1X/DAY
     Route: 048
  4. ENTRESTO [Concomitant]
     Active Substance: SACUBITRIL\VALSARTAN
     Dosage: 2 DF, 1X/DAY
     Route: 048
  5. DAPAGLIFLOZIN [Concomitant]
     Active Substance: DAPAGLIFLOZIN
     Dosage: 10 MG, 1X/DAY
     Route: 048
  6. ELIQUIS [Concomitant]
     Active Substance: APIXABAN
     Dosage: 5 MG, 1X/DAY
     Route: 048
  7. VYNDAQEL [Concomitant]
     Active Substance: TAFAMIDIS MEGLUMINE
     Dosage: 61 MG, 1X/DAY
     Route: 048
  8. ATORVASTATIN [Concomitant]
     Active Substance: ATORVASTATIN
     Dosage: 40 MG, 1X/DAY
     Route: 048
  9. FUROSEMIDE [Concomitant]
     Active Substance: FUROSEMIDE
     Dosage: 120 MG, 1X/DAY
     Route: 048
  10. METFORMIN HYDROCHLORIDE [Concomitant]
     Active Substance: METFORMIN HYDROCHLORIDE
     Dosage: 1000 MG, 1X/DAY
     Route: 048
  11. SITAGLIPTIN [Concomitant]
     Active Substance: SITAGLIPTIN
     Dosage: 50 MG, 1X/DAY
     Route: 048
  12. PANTOPRAZOLE [Concomitant]
     Active Substance: PANTOPRAZOLE
     Dosage: 20 MG, 1X/DAY
     Route: 048
  13. BUDESONIDE [Concomitant]
     Active Substance: BUDESONIDE
     Route: 055
  14. FORMOTEROL FUMARATE DIHYDRATE [Concomitant]
     Active Substance: FORMOTEROL FUMARATE DIHYDRATE
     Route: 055
  15. TIMOLOL MALEATE [Concomitant]
     Active Substance: TIMOLOL MALEATE
     Route: 031
  16. ALPRAZOLAM [Concomitant]
     Active Substance: ALPRAZOLAM
     Dosage: 0.25 MG, 1X/DAY
     Route: 048

REACTIONS (4)
  - Overdose [Fatal]
  - Encephalopathy [Fatal]
  - Acute kidney injury [Fatal]
  - Multiple organ dysfunction syndrome [Fatal]

NARRATIVE: CASE EVENT DATE: 20250106
